FAERS Safety Report 9765945 (Version 1)
Quarter: 2013Q4

REPORT INFORMATION
  Report Type: Spontaneous
  Country: US (occurrence: US)
  Receive Date: 20131217
  Receipt Date: 20131217
  Transmission Date: 20140711
  Serious: No
  Sender: FDA-Public Use
  Company Number: US-BIOGENIDEC-2013BI113856

PATIENT
  Sex: Female

DRUGS (7)
  1. TECFIDERA [Suspect]
     Indication: PRODUCT USED FOR UNKNOWN INDICATION
     Route: 048
     Dates: start: 20130709, end: 20130716
  2. TECFIDERA [Suspect]
     Indication: PRODUCT USED FOR UNKNOWN INDICATION
     Route: 048
     Dates: start: 20130717
  3. GABAPENTIN [Concomitant]
  4. SYNTHROID [Concomitant]
  5. ALEVE [Concomitant]
  6. NORCO [Concomitant]
  7. VITAMIN B12 [Concomitant]

REACTIONS (4)
  - Night sweats [Unknown]
  - General symptom [Unknown]
  - Adverse reaction [Unknown]
  - Memory impairment [Unknown]
